FAERS Safety Report 5284421-3 (Version None)
Quarter: 2007Q1

REPORT INFORMATION
  Report Type: 
  Country: None (occurrence: None)
  Receive Date: 20070327
  Receipt Date: 20070314
  Transmission Date: 20070707
  Serious: Yes (Death, Hospitalization)
  Sender: FDA-Public Use
  Company Number: JPKYO-S-20070002

PATIENT
  Age: 62 Year
  Sex: Male

DRUGS (7)
  1. NAVELBINE [Suspect]
     Indication: NON-SMALL CELL LUNG CANCER STAGE IV
     Dosage: 30 MG IV
     Route: 042
     Dates: start: 20060612, end: 20061205
  2. GASTER [Concomitant]
  3. VOLTAREN [Concomitant]
  4. MS CONTIN [Concomitant]
  5. GASMOTIN [Concomitant]
  6. PURSENNID [Concomitant]
  7. MYSLEE [Concomitant]

REACTIONS (5)
  - DRUG INEFFECTIVE [None]
  - DYSPNOEA [None]
  - GENERAL PHYSICAL HEALTH DETERIORATION [None]
  - INTERSTITIAL LUNG DISEASE [None]
  - PYREXIA [None]
